FAERS Safety Report 22075571 (Version 1)
Quarter: 2023Q1

REPORT INFORMATION
  Report Type: Spontaneous
  Country: US (occurrence: None)
  Receive Date: 20230308
  Receipt Date: 20230308
  Transmission Date: 20230418
  Serious: No
  Sender: FDA-Public Use
  Company Number: None

PATIENT
  Age: 84 Year
  Sex: Female
  Weight: 54.57 kg

DRUGS (13)
  1. CAPECITABINE [Suspect]
     Active Substance: CAPECITABINE
     Indication: Colon cancer
     Dosage: OTHER QUANTITY : 1000MG D1-14Q21D;?FREQUENCY : TWICE A DAY;?
     Route: 048
  2. XARELTO [Concomitant]
     Active Substance: RIVAROXABAN
  3. GLYCOLAX [Concomitant]
     Active Substance: POLYETHYLENE GLYCOL 3350
  4. SENOKOT [Concomitant]
     Active Substance: SENNOSIDES
  5. VERAPAMIL [Concomitant]
     Active Substance: VERAPAMIL HYDROCHLORIDE
  6. CRESTOR [Concomitant]
     Active Substance: ROSUVASTATIN CALCIUM
  7. ARIMIDEX [Concomitant]
     Active Substance: ANASTROZOLE
  8. MYRBETRIQ [Concomitant]
     Active Substance: MIRABEGRON
  9. COZAAR [Concomitant]
     Active Substance: LOSARTAN POTASSIUM
  10. VITAMINS [Concomitant]
     Active Substance: VITAMINS
  11. CALCIUM CARBONATE\VITAMIN D [Concomitant]
     Active Substance: CALCIUM CARBONATE\VITAMIN D
  12. LEVOTHYROXINE [Concomitant]
     Active Substance: LEVOTHYROXINE
  13. DICLOFENAC [Concomitant]
     Active Substance: DICLOFENAC

REACTIONS (1)
  - Hospice care [None]
